FAERS Safety Report 9520624 (Version 3)
Quarter: 2014Q1

REPORT INFORMATION
  Report Type: Spontaneous
  Country: CA (occurrence: CA)
  Receive Date: 20130913
  Receipt Date: 20140211
  Transmission Date: 20141002
  Serious: Yes (Other)
  Sender: FDA-Public Use
  Company Number: CA-ASTRAZENECA-2013SE68010

PATIENT
  Age: 62 Year
  Sex: Female

DRUGS (9)
  1. ATACAND [Suspect]
     Route: 048
  2. ATACAND [Suspect]
     Route: 048
  3. METOPROLOL [Suspect]
     Route: 048
  4. CRESTOR [Suspect]
     Route: 048
  5. BRILINTA [Suspect]
     Route: 048
     Dates: start: 20130827
  6. BRILINTA [Suspect]
     Route: 048
  7. ASA [Suspect]
     Route: 065
  8. COVERSYL [Suspect]
     Route: 065
  9. COLCHICINE [Concomitant]
     Indication: GOUT

REACTIONS (5)
  - Thrombosis [Not Recovered/Not Resolved]
  - Abasia [Not Recovered/Not Resolved]
  - Gout [Not Recovered/Not Resolved]
  - Cough [Not Recovered/Not Resolved]
  - Condition aggravated [Not Recovered/Not Resolved]
